FAERS Safety Report 9698979 (Version 1)
Quarter: 2013Q4

REPORT INFORMATION
  Report Type: Spontaneous
  Country: US (occurrence: US)
  Receive Date: 20131120
  Receipt Date: 20131120
  Transmission Date: 20140711
  Serious: Yes (Congenital Anomaly)
  Sender: FDA-Public Use
  Company Number: 2013SP003384

PATIENT
  Sex: 0

DRUGS (2)
  1. LATUDA [Suspect]
     Route: 064
  2. LAMICTAL [Suspect]
     Route: 064

REACTIONS (2)
  - Anomaly of external ear congenital [Unknown]
  - Exposure during pregnancy [Recovered/Resolved]
